FAERS Safety Report 8038817-7 (Version None)
Quarter: 2012Q1

REPORT INFORMATION
  Report Type: 
  Country: None (occurrence: None)
  Receive Date: 20120111
  Receipt Date: 20111206
  Transmission Date: 20120608
  Serious: No
  Sender: FDA-Public Use
  Company Number: US-AMGEN-USASP2011034993

PATIENT
  Age: 60 Year
  Sex: Female
  Weight: 104.31 kg

DRUGS (7)
  1. TEMOVATE [Concomitant]
     Dosage: BID, TWICE WEEKLY
     Route: 061
  2. CYMBALTA [Concomitant]
     Dosage: UNK
  3. CRESTOR [Concomitant]
     Dosage: UNK
  4. ENBREL [Suspect]
     Indication: PSORIATIC ARTHROPATHY
  5. LEVOTHYROXINE SODIUM [Concomitant]
  6. ALPRAZOLAM [Concomitant]
     Dosage: UNK
  7. ENBREL [Suspect]
     Indication: PSORIASIS
     Dosage: 50 MG TWICE WEEKLY
     Route: 058
     Dates: start: 20110901, end: 20111001

REACTIONS (6)
  - SUNBURN [None]
  - RASH [None]
  - MALAISE [None]
  - PSORIASIS [None]
  - PAIN IN EXTREMITY [None]
  - URINARY TRACT INFECTION [None]
